FAERS Safety Report 5730850-0 (Version None)
Quarter: 2008Q2

REPORT INFORMATION
  Report Type: 
  Country: None (occurrence: None)
  Receive Date: 20080507
  Receipt Date: 20080505
  Transmission Date: 20081010
  Serious: Yes (Hospitalization, Other)
  Sender: FDA-Public Use
  Company Number: BR-ASTRAZENECA-2008UW09189

PATIENT
  Age: 38 Year
  Sex: Male
  Weight: 76 kg

DRUGS (1)
  1. CRESTOR [Suspect]
     Indication: HYPERCHOLESTEROLAEMIA
     Route: 048
     Dates: start: 20080406, end: 20080416

REACTIONS (13)
  - BLOOD CREATININE INCREASED [None]
  - CHROMATURIA [None]
  - DYSPNOEA [None]
  - EYE SWELLING [None]
  - FATIGUE [None]
  - HEPATIC ENZYME INCREASED [None]
  - LOCAL SWELLING [None]
  - OCULAR ICTERUS [None]
  - PHARYNGOLARYNGEAL PAIN [None]
  - RENAL DISORDER [None]
  - RHABDOMYOLYSIS [None]
  - SWELLING FACE [None]
  - YELLOW SKIN [None]
